FAERS Safety Report 20152263 (Version 1)
Quarter: 2021Q4

REPORT INFORMATION
  Report Type: Spontaneous
  Country: US (occurrence: None)
  Receive Date: 20211205
  Receipt Date: 20211205
  Transmission Date: 20220303
  Serious: Yes (Life-Threatening, Hospitalization, Disabling, Other)
  Sender: FDA-Public Use
  Company Number: None

PATIENT
  Age: 67 Year
  Sex: Female

DRUGS (1)
  1. LEVAQUIN [Suspect]
     Active Substance: LEVOFLOXACIN
     Indication: Sinusitis

REACTIONS (5)
  - Tendon rupture [None]
  - Pain [None]
  - Mental disorder [None]
  - Neuralgia [None]
  - Nervous system disorder [None]

NARRATIVE: CASE EVENT DATE: 20070701
